FAERS Safety Report 21898713 (Version 1)
Quarter: 2023Q1

REPORT INFORMATION
  Report Type: Spontaneous
  Country: US (occurrence: None)
  Receive Date: 20230122
  Receipt Date: 20230122
  Transmission Date: 20230418
  Serious: No
  Sender: FDA-Public Use
  Company Number: None

PATIENT
  Age: 34 Year
  Sex: Female

DRUGS (1)
  1. EMGALITY [Suspect]
     Active Substance: GALCANEZUMAB-GNLM

REACTIONS (5)
  - Injection site erythema [None]
  - Injection site urticaria [None]
  - Injection site swelling [None]
  - Injection site pruritus [None]
  - Feeling hot [None]

NARRATIVE: CASE EVENT DATE: 20221221
